FAERS Safety Report 4915676-X (Version None)
Quarter: 2006Q1

REPORT INFORMATION
  Report Type: 
  Country: None (occurrence: None)
  Receive Date: 20060214
  Receipt Date: 20060202
  Transmission Date: 20060701
  Serious: Yes (Hospitalization, Other)
  Sender: FDA-Public Use
  Company Number: 430007M06USA

PATIENT
  Age: 26 Year
  Sex: Female
  Weight: 82.4 kg

DRUGS (16)
  1. NOVANTRONE [Suspect]
     Indication: ACUTE MYELOID LEUKAEMIA
     Dosage: 15 MG, INTRAVENOUS
     Route: 042
     Dates: start: 20050601, end: 20050605
  2. CEP-701 (INVESTIGATIONAL DRUG) [Suspect]
     Dosage: 80 MG, 2 IN 1 DAYS, ORAL
     Route: 048
     Dates: start: 20050613
  3. ETOPOSIDE [Suspect]
     Dosage: 191 MG, INTRAVENOUS
     Route: 042
     Dates: start: 20050601, end: 20050605
  4. CYTARABINE [Suspect]
     Dosage: 1.9 G, INTRAVENOUS
     Route: 042
     Dates: start: 20050601, end: 20050605
  5. MEROPENEM (MEROPENEM) [Concomitant]
  6. SOLU-MEDROL [Concomitant]
  7. VALACICLOVIR (VALACICLOVIR/01269701/) [Concomitant]
  8. PANTOPRAZOLE SODIUM [Concomitant]
  9. BENZONATATE [Concomitant]
  10. SEVELAMER (SEVELAMER) [Concomitant]
  11. ALLOPURINOL [Concomitant]
  12. LO/OVRAL (EUGYNON) [Concomitant]
  13. MAGNESIUM PLUS PROTEIN (MAGNESIUM HYDROXIDE) [Concomitant]
  14. ONDANSETRON [Concomitant]
  15. DILAUDID [Concomitant]
  16. AMBISOME [Concomitant]

REACTIONS (4)
  - BACTERIA STOOL IDENTIFIED [None]
  - ENTEROCOCCAL INFECTION [None]
  - FEBRILE NEUTROPENIA [None]
  - HERPES SIMPLEX SEROLOGY POSITIVE [None]
